FAERS Safety Report 17076523 (Version 1)
Quarter: 2019Q4

REPORT INFORMATION
  Report Type: Report from Study
  Country: RU (occurrence: RU)
  Receive Date: 20191126
  Receipt Date: 20191126
  Transmission Date: 20200122
  Serious: Yes (Hospitalization)
  Sender: FDA-Public Use
  Company Number: RU-ASTRAZENECA-2019SF66665

PATIENT
  Age: 72 Year
  Sex: Female
  Weight: 105 kg

DRUGS (10)
  1. CRESTOR [Suspect]
     Active Substance: ROSUVASTATIN CALCIUM
     Route: 048
     Dates: start: 201904
  2. CONCOR [Concomitant]
     Active Substance: BISOPROLOL FUMARATE
     Dates: start: 201904
  3. PRESTANCE [Concomitant]
     Active Substance: AMLODIPINE BESYLATE\PERINDOPRIL ARGININE
     Dates: start: 201904
  4. BRILINTA [Suspect]
     Active Substance: TICAGRELOR
     Indication: MYOCARDIAL INFARCTION
     Route: 048
     Dates: start: 201904
  5. ASPIRIN CARDIO [Concomitant]
     Active Substance: ASPIRIN
     Dates: start: 201904
  6. PRESTANCE [Concomitant]
     Active Substance: AMLODIPINE BESYLATE\PERINDOPRIL ARGININE
  7. CONCOR [Concomitant]
     Active Substance: BISOPROLOL FUMARATE
     Dates: start: 201904
  8. PRESTANCE [Concomitant]
     Active Substance: AMLODIPINE BESYLATE\PERINDOPRIL ARGININE
  9. ASPIRIN CARDIO [Concomitant]
     Active Substance: ASPIRIN
     Dates: start: 201904
  10. PRESTANCE [Concomitant]
     Active Substance: AMLODIPINE BESYLATE\PERINDOPRIL ARGININE
     Dates: start: 201904

REACTIONS (1)
  - Angina pectoris [Recovered/Resolved]

NARRATIVE: CASE EVENT DATE: 201905
